FAERS Safety Report 16287423 (Version 1)
Quarter: 2019Q2

REPORT INFORMATION
  Report Type: Spontaneous
  Country: US (occurrence: US)
  Receive Date: 20190508
  Receipt Date: 20190508
  Transmission Date: 20190711
  Serious: Yes (Death, Hospitalization)
  Sender: FDA-Public Use
  Company Number: US-PFIZER INC-2019195161

PATIENT
  Age: 66 Year
  Sex: Male

DRUGS (5)
  1. CIPROFLOXACIN. [Suspect]
     Active Substance: CIPROFLOXACIN
     Indication: URINARY TRACT INFECTION
     Dosage: 400 MG, 2X/DAY
     Route: 042
  2. CIPROFLOXACIN. [Suspect]
     Active Substance: CIPROFLOXACIN
     Indication: PSEUDOMONAS INFECTION
  3. CIPROFLOXACIN. [Suspect]
     Active Substance: CIPROFLOXACIN
     Indication: URINARY TRACT INFECTION
     Dosage: 500 MG, 2X/DAY
     Route: 048
  4. CEFOTETAN [Suspect]
     Active Substance: CEFOTETAN DISODIUM
     Indication: VOMITING
     Dosage: 1 G, 2X/DAY (I G EVERY 12 HOURS FOR 23 DAYS, EXTENDED COURSE OF THERAPY)
     Route: 042
  5. CIPROFLOXACIN. [Suspect]
     Active Substance: CIPROFLOXACIN
     Indication: PSEUDOMONAS INFECTION

REACTIONS (2)
  - Clostridium difficile infection [Fatal]
  - Pseudomembranous colitis [Fatal]
